FAERS Safety Report 5974083-1 (Version None)
Quarter: 2008Q4

REPORT INFORMATION
  Report Type: 
  Country: None (occurrence: None)
  Receive Date: 20081201
  Receipt Date: 20080905
  Transmission Date: 20090506
  Serious: No
  Sender: FDA-Public Use
  Company Number: US-AMGEN-KDL306076

PATIENT
  Sex: Male

DRUGS (2)
  1. ENBREL [Suspect]
     Indication: PSORIATIC ARTHROPATHY
     Dates: start: 20040729
  2. ENBREL [Suspect]
     Indication: PSORIASIS

REACTIONS (3)
  - CATARACT [None]
  - COUGH [None]
  - OROPHARYNGEAL PAIN [None]
